FAERS Safety Report 19208858 (Version 1)
Quarter: 2021Q2

REPORT INFORMATION
  Report Type: Spontaneous
  Country: US (occurrence: US)
  Receive Date: 20210504
  Receipt Date: 20210504
  Transmission Date: 20210717
  Serious: No
  Sender: FDA-Public Use
  Company Number: US-JNJFOC-20210453550

PATIENT
  Age: 59 Year
  Sex: Male

DRUGS (2)
  1. RELUGOLIX. [Suspect]
     Active Substance: RELUGOLIX
     Indication: PROSTATE CANCER
     Route: 048
  2. ERLEADA [Suspect]
     Active Substance: APALUTAMIDE
     Indication: PRODUCT USED FOR UNKNOWN INDICATION
     Route: 048

REACTIONS (1)
  - Hot flush [Unknown]
